FAERS Safety Report 12192113 (Version 1)
Quarter: 2016Q1

REPORT INFORMATION
  Report Type: Spontaneous
  Country: US (occurrence: US)
  Receive Date: 20160318
  Receipt Date: 20160318
  Transmission Date: 20160526
  Serious: Yes (Other)
  Sender: FDA-Public Use
  Company Number: US-SA-2016SA050185

PATIENT
  Age: 40 Year
  Sex: Female
  Weight: 81.65 kg

DRUGS (4)
  1. LYRICA [Suspect]
     Active Substance: PREGABALIN
     Route: 048
     Dates: start: 20060807, end: 20070102
  2. TOPAMAX [Concomitant]
     Active Substance: TOPIRAMATE
     Indication: SEIZURE
     Route: 065
  3. LAMICTAL [Concomitant]
     Active Substance: LAMOTRIGINE
     Indication: PARTIAL SEIZURES
     Route: 065
  4. AMBIEN [Suspect]
     Active Substance: ZOLPIDEM TARTRATE
     Indication: SLEEP DISORDER
     Route: 065

REACTIONS (6)
  - Generalised tonic-clonic seizure [Recovered/Resolved]
  - Seizure [Recovered/Resolved]
  - Nightmare [Recovering/Resolving]
  - Asocial behaviour [Recovered/Resolved]
  - Insomnia [Recovered/Resolved with Sequelae]
  - Drug ineffective [Unknown]

NARRATIVE: CASE EVENT DATE: 2006
